FAERS Safety Report 21074622 (Version 2)
Quarter: 2022Q3

REPORT INFORMATION
  Report Type: Report from Study
  Country: US (occurrence: None)
  Receive Date: 20220713
  Receipt Date: 20220723
  Transmission Date: 20221027
  Serious: Yes (Hospitalization)
  Sender: FDA-Public Use
  Company Number: US-ROCHE-3136766

PATIENT
  Age: 29 Year
  Sex: Male
  Weight: 109 kg

DRUGS (2)
  1. OMALIZUMAB [Suspect]
     Active Substance: OMALIZUMAB
     Indication: Food allergy
     Route: 058
     Dates: start: 20220107, end: 20220408
  2. OMALIZUMAB [Suspect]
     Active Substance: OMALIZUMAB
     Indication: Food allergy
     Route: 065

REACTIONS (1)
  - Ligament rupture [Recovering/Resolving]

NARRATIVE: CASE EVENT DATE: 20220425
